FAERS Safety Report 9891345 (Version 1)
Quarter: 2014Q1

REPORT INFORMATION
  Report Type: Spontaneous
  Country: US (occurrence: US)
  Receive Date: 20140212
  Receipt Date: 20140212
  Transmission Date: 20141002
  Serious: No
  Sender: FDA-Public Use
  Company Number: US-PFIZER INC-2014039095

PATIENT
  Age: 55 Year
  Sex: Female
  Weight: 43.08 kg

DRUGS (6)
  1. ALPRAZOLAM [Suspect]
     Indication: STRESS
     Dosage: 1 MG, 3X/DAY
     Route: 048
  2. ALPRAZOLAM [Suspect]
     Indication: NERVOUSNESS
  3. CYCLOBENZAPRINE [Concomitant]
  4. DILAUDID [Concomitant]
  5. SYNTHROID [Concomitant]
  6. BUMETANIDE [Concomitant]

REACTIONS (1)
  - Malaise [Recovered/Resolved]
